FAERS Safety Report 15514845 (Version 2)
Quarter: 2018Q4

REPORT INFORMATION
  Report Type: Spontaneous
  Country: US (occurrence: US)
  Receive Date: 20181017
  Receipt Date: 20181205
  Transmission Date: 20190205
  Serious: No
  Sender: FDA-Public Use
  Company Number: US-TEVA-2018-US-963304

PATIENT
  Sex: Male

DRUGS (1)
  1. PLIVA 411 TRAZODONE 150MG [Suspect]
     Active Substance: TRAZODONE HYDROCHLORIDE
     Route: 065
     Dates: start: 20180716

REACTIONS (2)
  - Product use complaint [Unknown]
  - Product physical issue [Unknown]
